FAERS Safety Report 10204687 (Version 1)
Quarter: 2014Q2

REPORT INFORMATION
  Report Type: Spontaneous
  Country: FR (occurrence: FR)
  Receive Date: 20140529
  Receipt Date: 20140529
  Transmission Date: 20141212
  Serious: Yes (Hospitalization)
  Sender: FDA-Public Use
  Company Number: FR-JNJFOC-20140510299

PATIENT
  Age: 89 Year
  Sex: Female
  Weight: 50 kg

DRUGS (6)
  1. RISPERDAL [Suspect]
     Indication: ABNORMAL BEHAVIOUR
     Route: 048
     Dates: start: 20131019
  2. RISPERDAL [Suspect]
     Indication: HALLUCINATION
     Route: 048
     Dates: start: 20131019
  3. AMLOR [Concomitant]
     Indication: HYPERTENSION
     Route: 048
  4. GINKOR FORT [Concomitant]
     Route: 048
     Dates: end: 20131024
  5. DOLIPRANE [Concomitant]
     Indication: PAIN
     Route: 048
  6. ESOMEPRAZOLE [Concomitant]
     Route: 048

REACTIONS (6)
  - Fall [Recovered/Resolved]
  - Rhabdomyolysis [Unknown]
  - Interstitial lung disease [Unknown]
  - Balance disorder [Unknown]
  - Orthostatic hypotension [Unknown]
  - Oedema peripheral [Recovered/Resolved]
